FAERS Safety Report 25519534 (Version 2)
Quarter: 2025Q3

REPORT INFORMATION
  Report Type: Spontaneous
  Country: CN (occurrence: CN)
  Receive Date: 20250704
  Receipt Date: 20250716
  Transmission Date: 20251021
  Serious: Yes (Hospitalization, Other)
  Sender: Kenvue
  Company Number: CN-KENVUE-20250612130

PATIENT

DRUGS (4)
  1. CHILDRENS MOTRIN [Suspect]
     Active Substance: IBUPROFEN
     Indication: Symptomatic treatment
     Dosage: 4 ML, FOUR TIME A DAY (QID)
     Route: 048
     Dates: start: 20250615
  2. CHILDRENS MOTRIN [Suspect]
     Active Substance: IBUPROFEN
     Indication: Pyrexia
  3. CEFDINIR [Suspect]
     Active Substance: CEFDINIR
     Indication: Symptomatic treatment
     Dosage: 30.000 MILLIGRAM, THRICE A DAY (TID)
     Route: 048
     Dates: start: 20250615
  4. CEFDINIR [Suspect]
     Active Substance: CEFDINIR
     Indication: Infection

REACTIONS (2)
  - Leukopenia [Recovered/Resolved]
  - Therapeutic product effect incomplete [Unknown]

NARRATIVE: CASE EVENT DATE: 20250615
